FAERS Safety Report 10057105 (Version 3)
Quarter: 2014Q2

REPORT INFORMATION
  Report Type: Spontaneous
  Country: IT (occurrence: IT)
  Receive Date: 20140403
  Receipt Date: 20140607
  Transmission Date: 20141212
  Serious: Yes (Hospitalization)
  Sender: FDA-Public Use
  Company Number: PHHY2014IT037743

PATIENT
  Age: 84 Year
  Sex: Male

DRUGS (9)
  1. ALLOPURINOL [Suspect]
     Dosage: 1 DF, QD
     Route: 048
  2. FEBUXOSTAT [Suspect]
     Dosage: 1 DF, QD
     Route: 048
  3. SOLOSA [Concomitant]
     Dosage: 2 MG, UNK
  4. TOTALIP [Concomitant]
     Dosage: 2 MG, UNK
  5. COUMADIN//WARFARIN SODIUM [Concomitant]
     Dosage: 5 MG, UNK
  6. FUROSEMIDE [Concomitant]
     Dosage: UNK
  7. NITROGLYCERIN [Concomitant]
     Dosage: UNK
  8. BISOPROLOL [Concomitant]
     Dosage: UNK
  9. OMEPRAZOLE [Concomitant]
     Dosage: UNK

REACTIONS (2)
  - Amylase increased [Not Recovered/Not Resolved]
  - Lipase increased [Not Recovered/Not Resolved]
